FAERS Safety Report 6364029-9 (Version None)
Quarter: 2009Q3

REPORT INFORMATION
  Report Type: 
  Country: None (occurrence: None)
  Receive Date: 20090919
  Receipt Date: 20090714
  Transmission Date: 20100115
  Serious: Yes (Other)
  Sender: FDA-Public Use
  Company Number: US-ABBOTT-09P-163-0585539-00

PATIENT
  Sex: Female

DRUGS (2)
  1. HUMIRA [Suspect]
     Indication: CROHN'S DISEASE
     Route: 058
     Dates: start: 20050101
  2. HUMIRA [Suspect]
     Route: 058
     Dates: start: 20050901

REACTIONS (5)
  - EAR INFECTION [None]
  - NASOPHARYNGITIS [None]
  - PAIN [None]
  - SINUSITIS [None]
  - SQUAMOUS CELL CARCINOMA [None]
